FAERS Safety Report 23882290 (Version 1)
Quarter: 2024Q2

REPORT INFORMATION
  Report Type: Spontaneous
  Country: IT (occurrence: IT)
  Receive Date: 20240522
  Receipt Date: 20240522
  Transmission Date: 20240715
  Serious: Yes (Death, Life-Threatening, Other)
  Sender: FDA-Public Use
  Company Number: None

PATIENT
  Age: 7 Year
  Sex: Female

DRUGS (37)
  1. TACROLIMUS [Suspect]
     Active Substance: TACROLIMUS
     Indication: Intestinal atony
     Dosage: UNK
     Route: 065
     Dates: start: 2018
  2. PREDNISOLONE [Suspect]
     Active Substance: PREDNISOLONE
     Indication: Graft versus host disease in skin
     Dosage: UNK
     Route: 037
     Dates: start: 201707, end: 2017
  3. PREDNISOLONE [Suspect]
     Active Substance: PREDNISOLONE
     Indication: T-cell type acute leukaemia
     Dosage: 1 MILLIGRAM/KILOGRAM, QD
     Route: 061
     Dates: start: 2018, end: 2018
  4. PREDNISOLONE [Suspect]
     Active Substance: PREDNISOLONE
     Indication: Metastases to central nervous system
     Dosage: 1 MILLIGRAM/KILOGRAM, QD (SYSTEMIC)
     Route: 065
     Dates: start: 2018, end: 2018
  5. PREDNISOLONE [Suspect]
     Active Substance: PREDNISOLONE
     Indication: Leukaemia recurrent
     Dosage: 5 MILLIGRAM/KILOGRAM, QD (MAXIMUM DOSAGE OF 5 MG/KG/DIE)
     Route: 065
     Dates: start: 201811
  6. PREDNISOLONE [Suspect]
     Active Substance: PREDNISOLONE
     Dosage: UNK
     Route: 065
  7. METHOTREXATE [Suspect]
     Active Substance: METHOTREXATE
     Indication: Leukaemia recurrent
     Dosage: UNK (BERLIN-FRANKFURT-M?NSTER-BACKBONE REGIMEN)
     Route: 065
  8. METHOTREXATE [Suspect]
     Active Substance: METHOTREXATE
     Indication: Metastases to central nervous system
     Dosage: UNK (INDUCTION)
     Route: 037
     Dates: start: 201707, end: 2017
  9. METHOTREXATE [Suspect]
     Active Substance: METHOTREXATE
     Indication: T-cell type acute leukaemia
     Dosage: UNK (CONSOLIDATION PHASE, BASED ON HIGH-DOSE METHOTREXATE)
     Route: 037
     Dates: start: 2017
  10. METHOTREXATE [Suspect]
     Active Substance: METHOTREXATE
     Indication: Prophylaxis against graft versus host disease
     Dosage: UNK, (SHORT-TERM)
     Route: 065
     Dates: start: 2018
  11. MYCOPHENOLATE MOFETIL [Suspect]
     Active Substance: MYCOPHENOLATE MOFETIL
     Indication: Intestinal atony
     Dosage: UNK
     Route: 065
     Dates: start: 2018
  12. FLUDARABINE [Suspect]
     Active Substance: FLUDARABINE PHOSPHATE
     Indication: Leukaemia recurrent
     Dosage: UNK (FLAG-MYOCET REGIMEN)
     Route: 065
     Dates: end: 2018
  13. FLUDARABINE [Suspect]
     Active Substance: FLUDARABINE PHOSPHATE
     Indication: T-cell type acute leukaemia
  14. FLUDARABINE [Suspect]
     Active Substance: FLUDARABINE PHOSPHATE
     Indication: Metastases to central nervous system
  15. LAPINE T-LYMPHOCYTE IMMUNE GLOBULIN [Suspect]
     Active Substance: LAPINE T-LYMPHOCYTE IMMUNE GLOBULIN
     Indication: Bone marrow conditioning regimen
     Dosage: 240 MILLIGRAM/SQ. METER, QD
     Route: 065
     Dates: start: 201804, end: 201804
  16. CYCLOSPORINE [Suspect]
     Active Substance: CYCLOSPORINE
     Indication: Prophylaxis against graft versus host disease
     Dosage: UNK
     Route: 065
     Dates: start: 2018
  17. VINCRISTINE [Suspect]
     Active Substance: VINCRISTINE
     Indication: T-cell type acute leukaemia
     Dosage: UNK (BERLIN-FRANKFURT-M?NSTER-BACKBONE REGIMEN)
     Route: 065
     Dates: start: 201707, end: 2017
  18. VINCRISTINE [Suspect]
     Active Substance: VINCRISTINE
     Indication: Metastases to central nervous system
  19. METHYLPREDNISOLONE [Suspect]
     Active Substance: METHYLPREDNISOLONE
     Indication: Diarrhoea
     Dosage: 1 MILLIGRAM/KILOGRAM, ONCE A WEEK (BOLUS OF 0.5 MG/KG OF METHYLPREDNISOLONE TWICE A WEEK)
     Route: 065
     Dates: start: 201811
  20. METHYLPREDNISOLONE [Suspect]
     Active Substance: METHYLPREDNISOLONE
     Indication: Vomiting
  21. METHYLPREDNISOLONE [Suspect]
     Active Substance: METHYLPREDNISOLONE
     Indication: Weight decreased
  22. METHYLPREDNISOLONE [Suspect]
     Active Substance: METHYLPREDNISOLONE
     Indication: Abdominal pain
  23. DOXORUBICIN [Suspect]
     Active Substance: DOXORUBICIN
     Indication: Leukaemia recurrent
     Dosage: UNK (FLAG-MYOCET REGIMEN)
     Route: 065
     Dates: end: 2018
  24. DOXORUBICIN [Suspect]
     Active Substance: DOXORUBICIN
     Indication: Metastases to central nervous system
  25. DOXORUBICIN [Suspect]
     Active Substance: DOXORUBICIN
     Indication: T-cell type acute leukaemia
  26. CYTARABINE [Suspect]
     Active Substance: CYTARABINE
     Indication: Leukaemia recurrent
     Dosage: UNK
     Route: 037
     Dates: start: 201707, end: 2017
  27. CYTARABINE [Suspect]
     Active Substance: CYTARABINE
     Indication: Metastases to central nervous system
     Dosage: UNK (FLAG-MYOCET REGIMEN)
     Route: 065
     Dates: end: 2018
  28. CYTARABINE [Suspect]
     Active Substance: CYTARABINE
     Indication: T-cell type acute leukaemia
     Dosage: UNK (BERLIN-FRANKFURT-M?NSTER-BACKBONE REGIMEN)
     Route: 065
  29. DAUNORUBICIN [Suspect]
     Active Substance: DAUNORUBICIN
     Indication: Metastases to central nervous system
     Dosage: UNK (BERLIN-FRANKFURT-M?NSTER-BACKBONE REGIMEN)
     Route: 065
     Dates: start: 201707, end: 2017
  30. DAUNORUBICIN [Suspect]
     Active Substance: DAUNORUBICIN
     Indication: T-cell type acute leukaemia
  31. CYCLOPHOSPHAMIDE [Suspect]
     Active Substance: CYCLOPHOSPHAMIDE
     Indication: T-cell type acute leukaemia
     Dosage: UNK (BERLIN-FRANKFURT-M?NSTER-BACKBONE REGIMEN)
     Route: 065
     Dates: start: 201707, end: 2017
  32. CYCLOPHOSPHAMIDE [Suspect]
     Active Substance: CYCLOPHOSPHAMIDE
     Indication: Metastases to central nervous system
     Dosage: 60 MILLIGRAM/SQ. METER (CUMMALATIVE: 120 MG/M2)
     Route: 065
     Dates: start: 201804, end: 201804
  33. CYCLOPHOSPHAMIDE [Suspect]
     Active Substance: CYCLOPHOSPHAMIDE
     Indication: Bone marrow conditioning regimen
  34. BECLOMETHASONE DIPROPIONATE [Suspect]
     Active Substance: BECLOMETHASONE DIPROPIONATE
     Indication: Graft versus host disease in gastrointestinal tract
     Dosage: 4 MILLIGRAM/KILOGRAM, QD (MAXIMUM DOSAGE OF 4 MG/KG/DIE)
     Route: 065
     Dates: start: 201811
  35. BECLOMETHASONE DIPROPIONATE [Suspect]
     Active Substance: BECLOMETHASONE DIPROPIONATE
     Dosage: UNK
     Route: 065
     Dates: start: 2018, end: 2018
  36. DEXAMETHASONE [Suspect]
     Active Substance: DEXAMETHASONE
     Indication: Metastases to central nervous system
     Dosage: UNK (BERLIN-FRANKFURT-M?NSTER-BACKBONE REGIMEN)
     Route: 065
     Dates: start: 201707, end: 2017
  37. DEXAMETHASONE [Suspect]
     Active Substance: DEXAMETHASONE
     Indication: T-cell type acute leukaemia

REACTIONS (11)
  - Haemostasis [Fatal]
  - Intestinal atony [Fatal]
  - Cardiopulmonary failure [Fatal]
  - Cardiac arrest [Fatal]
  - Pneumatosis intestinalis [Fatal]
  - Pulmonary oedema [Fatal]
  - Seizure [Fatal]
  - Portal vein embolism [Fatal]
  - Trismus [Fatal]
  - Pulmonary embolism [Fatal]
  - Multiple organ dysfunction syndrome [Fatal]

NARRATIVE: CASE EVENT DATE: 20181101
